FAERS Safety Report 10527735 (Version 1)
Quarter: 2014Q4

REPORT INFORMATION
  Report Type: Spontaneous
  Country: US (occurrence: None)
  Receive Date: 20141016
  Receipt Date: 20141016
  Transmission Date: 20150528
  Serious: Yes (Disabling)
  Sender: FDA-Public Use
  Company Number: None

PATIENT
  Age: 41 Year
  Sex: Male
  Weight: 83.92 kg

DRUGS (1)
  1. LEVAQUIN [Suspect]
     Active Substance: LEVOFLOXACIN
     Indication: INFECTION
     Route: 042

REACTIONS (8)
  - Pain [None]
  - Temperature intolerance [None]
  - Hypoaesthesia [None]
  - Paraesthesia [None]
  - Inclusion body myositis [None]
  - Hyperaesthesia [None]
  - Impaired work ability [None]
  - Muscular weakness [None]

NARRATIVE: CASE EVENT DATE: 20060810
